FAERS Safety Report 7552123-6 (Version None)
Quarter: 2011Q2

REPORT INFORMATION
  Report Type: 
  Country: None (occurrence: None)
  Receive Date: 20110616
  Receipt Date: 20110606
  Transmission Date: 20111010
  Serious: Yes (Other)
  Sender: FDA-Public Use
  Company Number: PHHY2011US18961

PATIENT
  Sex: Male
  Weight: 128.2 kg

DRUGS (3)
  1. ALBUTEROL SULFATE AUTOHALER [Concomitant]
     Indication: ASTHMA
  2. LEXAPRO [Concomitant]
     Indication: DEPRESSION
     Dosage: 30 MG, QD
     Route: 048
  3. TASIGNA [Suspect]
     Indication: CHRONIC MYELOID LEUKAEMIA
     Dosage: 400 MG, BID
     Route: 048
     Dates: start: 20110209, end: 20110224

REACTIONS (7)
  - HEART RATE INCREASED [None]
  - DYSPNOEA [None]
  - HEAD DISCOMFORT [None]
  - PALPITATIONS [None]
  - MOOD SWINGS [None]
  - RASH [None]
  - PAIN OF SKIN [None]
